FAERS Safety Report 17578185 (Version 1)
Quarter: 2020Q1

REPORT INFORMATION
  Report Type: Spontaneous
  Country: CN (occurrence: CN)
  Receive Date: 20200324
  Receipt Date: 20200324
  Transmission Date: 20200409
  Serious: Yes (Other)
  Sender: FDA-Public Use
  Company Number: CN-009507513-2003CHN007789

PATIENT
  Age: 69 Year
  Sex: Male

DRUGS (1)
  1. PEMBROLIZUMAB. [Suspect]
     Active Substance: PEMBROLIZUMAB
     Indication: LUNG SQUAMOUS CELL CARCINOMA STAGE IV
     Dosage: 200 MILLIGRAM, EVERY THREE WEEKS, MONOTHERAPY, 22 CYCLES
     Dates: start: 201712

REACTIONS (2)
  - Small cell lung cancer [Unknown]
  - Malignant transformation [Unknown]

NARRATIVE: CASE EVENT DATE: 201903
